FAERS Safety Report 7420463-7 (Version None)
Quarter: 2011Q2

REPORT INFORMATION
  Report Type: 
  Country: None (occurrence: None)
  Receive Date: 20110418
  Receipt Date: 20110412
  Transmission Date: 20111010
  Serious: No
  Sender: FDA-Public Use
  Company Number: US-PFIZER INC-2011081305

PATIENT
  Sex: Female
  Weight: 90.703 kg

DRUGS (1)
  1. TETRACYCLINE HCL [Suspect]
     Dosage: UNK
     Route: 048

REACTIONS (1)
  - TOOTH DISCOLOURATION [None]
